FAERS Safety Report 4618689-0 (Version None)
Quarter: 2005Q2

REPORT INFORMATION
  Report Type: 
  Country: None (occurrence: None)
  Receive Date: 20050311
  Receipt Date: 20041108
  Transmission Date: 20051028
  Serious: No
  Sender: FDA-Public Use
  Company Number: 2004-BP-09310BP

PATIENT
  Age: 75 Year
  Sex: Male

DRUGS (9)
  1. SPIRIVA [Suspect]
     Indication: CHRONIC OBSTRUCTIVE PULMONARY DISEASE
     Dosage: 18 MCG (18 MCG), IH
     Route: 055
     Dates: start: 20040701
  2. SPIRIVA [Suspect]
  3. SPIRIVA [Suspect]
  4. SINGULAIR [Concomitant]
  5. FLOMAX [Concomitant]
  6. ZOCOR [Concomitant]
  7. TICLID [Concomitant]
  8. THEOPHYLLINE [Concomitant]
  9. ADVAIR DISKUS 100/50 [Concomitant]

REACTIONS (2)
  - DRY MOUTH [None]
  - MOUTH INJURY [None]
